FAERS Safety Report 12917837 (Version 2)
Quarter: 2016Q4

REPORT INFORMATION
  Report Type: Spontaneous
  Country: US (occurrence: US)
  Receive Date: 20161107
  Receipt Date: 20161213
  Transmission Date: 20170207
  Serious: No
  Sender: FDA-Public Use
  Company Number: US-PFIZER INC-2016516550

PATIENT
  Age: 62 Year
  Sex: Female
  Weight: 70.31 kg

DRUGS (1)
  1. LYRICA [Suspect]
     Active Substance: PREGABALIN
     Indication: NEURALGIA
     Dosage: 100 MG, 3X/DAY
     Route: 048

REACTIONS (5)
  - Drug dose omission [Unknown]
  - Withdrawal syndrome [Unknown]
  - Neuropathy peripheral [Unknown]
  - Paraesthesia [Unknown]
  - Burning sensation [Unknown]

NARRATIVE: CASE EVENT DATE: 20161101
